FAERS Safety Report 10094417 (Version 4)
Quarter: 2014Q3

REPORT INFORMATION
  Report Type: Spontaneous
  Country: IT (occurrence: None)
  Receive Date: 20140418
  Receipt Date: 20140820
  Transmission Date: 20150326
  Serious: Yes (Hospitalization)
  Sender: FDA-Public Use
  Company Number: 2014AP002590

PATIENT
  Age: 34 Year
  Sex: Female

DRUGS (5)
  1. GARDENAL /00023201/ (PHENOBARBITAL) [Concomitant]
  2. FERRIPROX [Suspect]
     Active Substance: DEFERIPRONE
     Indication: IRON OVERLOAD
     Route: 048
     Dates: start: 20140221, end: 20140319
  3. PERINDOPRIL (PERINDOPRIL) [Concomitant]
     Active Substance: PERINDOPRIL
  4. DEFEROXAMINE (DEFEROXAMINE) [Concomitant]
  5. EXJADE (DEFERASIROX) [Concomitant]

REACTIONS (8)
  - Agranulocytosis [None]
  - Pyrexia [None]
  - Thrombocytopenia [None]
  - Hepatic enzyme increased [None]
  - Anaemia [None]
  - Pharyngotonsillitis [None]
  - Abdominal pain upper [None]
  - Asthenia [None]

NARRATIVE: CASE EVENT DATE: 20140318
